FAERS Safety Report 18712193 (Version 2)
Quarter: 2021Q1

REPORT INFORMATION
  Report Type: Spontaneous
  Country: JP (occurrence: JP)
  Receive Date: 20210107
  Receipt Date: 20210208
  Transmission Date: 20210419
  Serious: Yes (Hospitalization, Other)
  Sender: FDA-Public Use
  Company Number: JP-PFIZER INC-2021008535

PATIENT
  Age: 78 Year
  Sex: Male
  Weight: 52 kg

DRUGS (6)
  1. SPIRIVA [Concomitant]
     Active Substance: TIOTROPIUM BROMIDE MONOHYDRATE
     Indication: CHRONIC OBSTRUCTIVE PULMONARY DISEASE
     Dosage: 5 UG, 1X/DAY
     Route: 045
     Dates: start: 20190805
  2. CALONAL [Concomitant]
     Active Substance: ACETAMINOPHEN
     Indication: PAIN
     Dosage: 400 MG, AS NEEDED
     Route: 048
     Dates: start: 20201026
  3. GASLON [Concomitant]
     Active Substance: IRSOGLADINE MALEATE
     Dosage: 4 MG, 1X/DAY
     Route: 048
  4. BIO?THREE [Concomitant]
     Active Substance: HERBALS
     Dosage: UNK, 3X/DAY
     Route: 048
  5. LORBRENA [Suspect]
     Active Substance: LORLATINIB
     Indication: LUNG NEOPLASM MALIGNANT
     Dosage: 100 MG, 1X/DAY
     Route: 048
     Dates: start: 20201027, end: 20201116
  6. LORBRENA [Suspect]
     Active Substance: LORLATINIB
     Dosage: 50 MG, 1X/DAY
     Route: 048
     Dates: start: 20201125, end: 20201208

REACTIONS (11)
  - Oedema [Recovered/Resolved]
  - Blood pressure increased [Unknown]
  - Oedema peripheral [Recovered/Resolved]
  - Pleural effusion [Unknown]
  - Dyspnoea [Recovering/Resolving]
  - Face oedema [Recovered/Resolved]
  - Cardiomyopathy [Unknown]
  - Brain natriuretic peptide increased [Unknown]
  - Dyspnoea exertional [Unknown]
  - Cardiac failure [Recovered/Resolved]
  - Neoplasm progression [Unknown]

NARRATIVE: CASE EVENT DATE: 20201112
